FAERS Safety Report 8619649-5 (Version None)
Quarter: 2012Q3

REPORT INFORMATION
  Report Type: 
  Country: None (occurrence: None)
  Receive Date: 20120824
  Receipt Date: 20120820
  Transmission Date: 20120928
  Serious: Yes (Life-Threatening, Hospitalization, Other)
  Sender: FDA-Public Use
  Company Number: US-009507513-1012USA03568

PATIENT

DRUGS (15)
  1. FLOMAX [Concomitant]
     Indication: BENIGN PROSTATIC HYPERPLASIA
     Dosage: 0.4 MG, QD
  2. PRINIVIL [Suspect]
     Indication: HYPERTENSION
     Dosage: 40 MG, UNK
     Route: 048
     Dates: end: 20101207
  3. NIASPAN [Concomitant]
     Dosage: 750 MG, HS
     Route: 048
     Dates: end: 20101201
  4. OMEGA-3-ACID ETHYL ESTERS [Concomitant]
     Indication: DYSLIPIDAEMIA
     Dosage: UNK G, UNK
     Route: 048
  5. GLUCOPHAGE [Suspect]
     Dosage: 1000 MG, BID
  6. ZETIA [Concomitant]
     Indication: BLOOD CHOLESTEROL INCREASED
     Dosage: 10 MG, QD
     Route: 048
     Dates: end: 20101201
  7. JANUMET [Suspect]
     Dosage: 100/2000
     Route: 048
  8. JANUVIA [Suspect]
     Indication: TYPE 2 DIABETES MELLITUS
     Route: 048
     Dates: start: 20090209, end: 20090601
  9. CRESTOR [Concomitant]
     Indication: CORONARY ARTERY DISEASE
  10. NORVASC [Concomitant]
     Indication: HYPERTENSION
     Dosage: 2.5 MG, TID
     Route: 048
     Dates: end: 20101201
  11. JANUMET [Suspect]
     Indication: TYPE 2 DIABETES MELLITUS
     Dosage: 50/1000
     Route: 048
     Dates: start: 20090601, end: 20101207
  12. ASPIRIN [Concomitant]
     Indication: PROPHYLAXIS
     Dosage: 81 MG, UNK
     Route: 048
  13. CRESTOR [Concomitant]
     Indication: DYSLIPIDAEMIA
     Dosage: 10 MG, QD
     Route: 048
  14. NEXIUM [Concomitant]
     Indication: GASTROOESOPHAGEAL REFLUX DISEASE
     Dosage: 40 MG, UNK
     Route: 048
  15. KRILL OIL [Concomitant]
     Dosage: UNK, QD

REACTIONS (16)
  - ADRENAL MASS [None]
  - THROMBOCYTOSIS [None]
  - SURGERY [None]
  - PANCREATITIS [None]
  - CHOLECYSTITIS CHRONIC [None]
  - PANCREATITIS NECROTISING [None]
  - ILEUS [None]
  - RETROPERITONEAL FIBROSIS [None]
  - PANCREATIC CARCINOMA [None]
  - INTRADUCTAL PAPILLARY MUCINOUS NEOPLASM [None]
  - GASTROINTESTINAL TUBE INSERTION [None]
  - PANCREATICODUODENECTOMY [None]
  - CHOLECYSTECTOMY [None]
  - MALIGNANT NEOPLASM OF AMPULLA OF VATER [None]
  - HYPERGLYCAEMIA [None]
  - HAEMOGLOBIN DECREASED [None]
